FAERS Safety Report 4674773-7 (Version None)
Quarter: 2005Q2

REPORT INFORMATION
  Report Type: 
  Country: None (occurrence: None)
  Receive Date: 20050526
  Receipt Date: 20050519
  Transmission Date: 20051028
  Serious: Yes (Life-Threatening)
  Sender: FDA-Public Use
  Company Number: 2005CG00953

PATIENT
  Age: 30 Month
  Sex: Female
  Weight: 9.4 kg

DRUGS (9)
  1. DIPRIVAN [Suspect]
     Indication: GENERAL ANAESTHESIA
     Route: 042
     Dates: start: 20050310, end: 20050310
  2. TRACRIUM [Suspect]
     Indication: GENERAL ANAESTHESIA
     Route: 042
     Dates: start: 20050310, end: 20050310
  3. AUGMENTIN [Suspect]
     Route: 042
     Dates: start: 20050310, end: 20050310
  4. PERFALGAN [Suspect]
     Route: 042
     Dates: start: 20050310, end: 20050310
  5. SUFENTANIL [Suspect]
     Indication: GENERAL ANAESTHESIA
     Route: 042
     Dates: start: 20050310, end: 20050310
  6. NUBAIN [Concomitant]
     Route: 042
     Dates: start: 20050311
  7. LEVOCARNIL [Concomitant]
     Dates: start: 20050303
  8. MOTILIUM [Concomitant]
     Dates: start: 20050303
  9. SMECTA [Concomitant]
     Route: 048
     Dates: start: 20050303

REACTIONS (6)
  - ANAEMIA [None]
  - COMA [None]
  - CYTOLYTIC HEPATITIS [None]
  - HYPERKALAEMIA [None]
  - PERITONEAL HAEMORRHAGE [None]
  - PROTHROMBIN LEVEL DECREASED [None]
